FAERS Safety Report 7739631 (Version 3)
Quarter: 2013Q3

REPORT INFORMATION
  Report Type: Spontaneous
  Country: BG (occurrence: None)
  Receive Date: 20101123
  Receipt Date: 20130812
  Transmission Date: 20140515
  Serious: Yes (Death, Life-Threatening)
  Sender: FDA-Public Use
  Company Number: BG-021387

PATIENT
  Age: 81 Year
  Sex: Male

DRUGS (3)
  1. CHLORAMBUCIL [Suspect]
     Indication: CHRONIC LYMPHOCYTIC LEUKAEMIA
     Dosage: 52 MG QD, 1 IN 1 D
     Dates: start: 20101011, end: 20101027
  2. MILURIT(ALLOPURINOL)(ALLOPURINOL) [Concomitant]
  3. ENALAPRIL(ENALAPRIL) [Concomitant]

REACTIONS (19)
  - Febrile neutropenia [None]
  - Anaemia [None]
  - Enterobacter sepsis [None]
  - Acute respiratory failure [None]
  - Pneumonia [None]
  - Bone marrow failure [None]
  - Blood lactate dehydrogenase increased [None]
  - Blood alkaline phosphatase increased [None]
  - Aspartate aminotransferase increased [None]
  - Blood sodium increased [None]
  - Blood potassium decreased [None]
  - Rash pustular [None]
  - Aphthous stomatitis [None]
  - General physical health deterioration [None]
  - Brain oedema [None]
  - Dilatation ventricular [None]
  - Hypoproteinaemia [None]
  - Respiratory failure [None]
  - Circulatory collapse [None]
